FAERS Safety Report 21126236 (Version 1)
Quarter: 2022Q3

REPORT INFORMATION
  Report Type: Spontaneous
  Country: US (occurrence: None)
  Receive Date: 20220724
  Receipt Date: 20220724
  Transmission Date: 20221027
  Serious: Yes (unspecified)
  Sender: FDA-Public Use
  Company Number: None

PATIENT
  Age: 24 Year
  Sex: Female
  Weight: 45 kg

DRUGS (2)
  1. NORETHINDRONE [Suspect]
     Active Substance: NORETHINDRONE
     Indication: Oral contraception
     Dosage: OTHER QUANTITY : 1 TABLET(S);?FREQUENCY : DAILY;?
     Route: 048
     Dates: start: 20220510, end: 20220724
  2. WOMENS DAILY VITAMIN [Concomitant]

REACTIONS (4)
  - Alopecia universalis [None]
  - Acne [None]
  - Hirsutism [None]
  - Suicidal ideation [None]

NARRATIVE: CASE EVENT DATE: 20220701
